FAERS Safety Report 17297643 (Version 1)
Quarter: 2020Q1

REPORT INFORMATION
  Report Type: Spontaneous
  Country: FR (occurrence: FR)
  Receive Date: 20200122
  Receipt Date: 20200122
  Transmission Date: 20200409
  Serious: Yes (Other)
  Sender: FDA-Public Use
  Company Number: FR-ACCORD-170310

PATIENT
  Sex: Male
  Weight: 62 kg

DRUGS (4)
  1. KARDEGIC [Concomitant]
     Active Substance: ASPIRIN DL-LYSINE
     Indication: HEART DISEASE CONGENITAL
     Dosage: STRENGTH-75MG
     Route: 048
     Dates: start: 20130905
  2. NEBIVOLOL. [Concomitant]
     Active Substance: NEBIVOLOL
     Indication: HEART DISEASE CONGENITAL
     Route: 048
     Dates: start: 20130905
  3. ROSUVASTATIN. [Suspect]
     Active Substance: ROSUVASTATIN
     Indication: PROPHYLAXIS
     Route: 048
     Dates: start: 20170106, end: 20190211
  4. CRESTOR [Suspect]
     Active Substance: ROSUVASTATIN CALCIUM
     Indication: PROPHYLAXIS
     Dosage: STRENGTH-5 MG
     Route: 048
     Dates: start: 200909, end: 20170105

REACTIONS (4)
  - Gynaecomastia [Recovered/Resolved]
  - Muscle spasms [Recovered/Resolved]
  - Pulmonary fibrosis [Not Recovered/Not Resolved]
  - Interstitial lung disease [Recovering/Resolving]

NARRATIVE: CASE EVENT DATE: 2013
